FAERS Safety Report 7577820-8 (Version None)
Quarter: 2011Q2

REPORT INFORMATION
  Report Type: 
  Country: None (occurrence: None)
  Receive Date: 20110628
  Receipt Date: 20110616
  Transmission Date: 20111010
  Serious: Yes (Other)
  Sender: FDA-Public Use
  Company Number: PHHY2011JP53674

PATIENT
  Age: 78 Year
  Sex: Male

DRUGS (2)
  1. COMTAN [Suspect]
     Indication: PARKINSON'S DISEASE
     Route: 048
  2. MADOPAR [Concomitant]
     Route: 048

REACTIONS (1)
  - URINARY RETENTION [None]
